FAERS Safety Report 17437306 (Version 4)
Quarter: 2020Q3

REPORT INFORMATION
  Report Type: Report from Study
  Country: JP (occurrence: JP)
  Receive Date: 20200219
  Receipt Date: 20200728
  Transmission Date: 20201102
  Serious: Yes (Death, Hospitalization, Other)
  Sender: FDA-Public Use
  Company Number: JP-BRISTOL-MYERS SQUIBB COMPANY-BMS-2019-124317

PATIENT
  Age: 75 Year
  Sex: Male
  Weight: 56 kg

DRUGS (14)
  1. NIVOLUMAB [Suspect]
     Active Substance: NIVOLUMAB
     Dosage: 240 MILLIGRAM
     Route: 041
     Dates: start: 20191225, end: 20191225
  2. MEKTOVI [Suspect]
     Active Substance: BINIMETINIB
     Dosage: 60 MILLIGRAM
     Route: 048
     Dates: start: 20190904, end: 20191001
  3. MEKTOVI [Suspect]
     Active Substance: BINIMETINIB
     Indication: MALIGNANT MELANOMA
     Dosage: 90 MILLIGRAM
     Route: 048
     Dates: start: 20190611, end: 20190730
  4. NIVOLUMAB [Suspect]
     Active Substance: NIVOLUMAB
     Indication: MALIGNANT MELANOMA
     Dosage: UNK
     Route: 041
     Dates: start: 20190116, end: 20190410
  5. MEKTOVI [Suspect]
     Active Substance: BINIMETINIB
     Dosage: 30 MILLIGRAM
     Route: 048
     Dates: start: 20200123, end: 20200123
  6. NESINA [Concomitant]
     Active Substance: ALOGLIPTIN BENZOATE
     Indication: PRODUCT USED FOR UNKNOWN INDICATION
     Dosage: 12.5 MILLIGRAM, QD
     Route: 048
  7. NIVOLUMAB [Suspect]
     Active Substance: NIVOLUMAB
     Dosage: 240 MILLIGRAM
     Route: 041
     Dates: start: 20191016, end: 20191127
  8. BRAFTOVI [Suspect]
     Active Substance: ENCORAFENIB
     Dosage: 300 MILLIGRAM
     Route: 048
     Dates: start: 20190904, end: 20191001
  9. BRAFTOVI [Suspect]
     Active Substance: ENCORAFENIB
     Dosage: 150 MILLIGRAM
     Route: 048
     Dates: start: 20200123, end: 20200123
  10. LANSOPRAZOLE. [Suspect]
     Active Substance: LANSOPRAZOLE
     Indication: MENINGITIS
     Dosage: 15 MILLIGRAM
     Route: 048
     Dates: start: 20190521, end: 20191209
  11. BRAFTOVI [Suspect]
     Active Substance: ENCORAFENIB
     Indication: MALIGNANT MELANOMA
     Dosage: 450 MILLIGRAM
     Route: 048
     Dates: start: 20190611, end: 20190730
  12. TAKEPRON [Concomitant]
     Active Substance: LANSOPRAZOLE
     Indication: PRODUCT USED FOR UNKNOWN INDICATION
     Dosage: 30 MILLIGRAM, QD
     Route: 042
     Dates: start: 20190510, end: 20190520
  13. BIO?THREE [Concomitant]
     Active Substance: HERBALS
     Indication: PRODUCT USED FOR UNKNOWN INDICATION
     Dosage: 1 DOSAGE FORM, TID(Q8H)
     Route: 048
     Dates: start: 20190716
  14. AMLODIPINE [Concomitant]
     Active Substance: AMLODIPINE BESYLATE
     Indication: PRODUCT USED FOR UNKNOWN INDICATION
     Dosage: 5 MILLIGRAM, QD
     Route: 048

REACTIONS (6)
  - Thalamus haemorrhage [Recovered/Resolved]
  - Meningitis [Recovered/Resolved]
  - Acarodermatitis [Unknown]
  - Colitis microscopic [Recovered/Resolved]
  - Malignant neoplasm progression [Fatal]
  - Diarrhoea [Recovered/Resolved]

NARRATIVE: CASE EVENT DATE: 20190427
